FAERS Safety Report 4717575-5 (Version None)
Quarter: 2005Q3

REPORT INFORMATION
  Report Type: 
  Country: None (occurrence: None)
  Receive Date: 20050712
  Receipt Date: 20050329
  Transmission Date: 20060218
  Serious: No
  Sender: FDA-Public Use
  Company Number: 2005S1000136

PATIENT
  Sex: 0

DRUGS (31)
  1. CUBICIN [Suspect]
     Dosage: 300 MG;Q24H;IV
     Route: 042
     Dates: start: 20041214, end: 20041217
  2. TOTAL PARENTERAL NUTRTION [Concomitant]
  3. ACETAMINOPHEN [Concomitant]
  4. CHLORHEXIDINE [Concomitant]
  5. DIPHENHYDRAMINE HCL [Concomitant]
  6. DOPAMINE HCL [Concomitant]
  7. FENTANYL [Concomitant]
  8. FUROSEMIDE [Concomitant]
  9. HYDROCORTISONE [Concomitant]
  10. HYDROMORPHONE HCL [Concomitant]
  11. INSULIN GLARGINE [Concomitant]
  12. INSULIN HUMAN REGULAR [Concomitant]
  13. METHYLPREDNISOLONE [Concomitant]
  14. SODIUM NITROPRUSSIDE [Concomitant]
  15. NOREPINEPHRINE [Concomitant]
  16. OCTREOTIDE ACETATE [Concomitant]
  17. PROPOFOL [Concomitant]
  18. ROXICET [Concomitant]
  19. SEVELAMER [Concomitant]
  20. SODIUM BICARBONATE [Concomitant]
  21. SODIUM CHRLORIDE [Concomitant]
  22. SUCRALFATE [Concomitant]
  23. AZTREONAM [Concomitant]
  24. CASPOFUNGIN [Concomitant]
  25. CEFEPIME [Concomitant]
  26. GANCICLOVIR [Concomitant]
  27. METRONIDAZOLE [Concomitant]
  28. PRIMAXIN [Concomitant]
  29. SULFAMETHOXAZOLE + TRIMETHOPRIM [Concomitant]
  30. TACROLIMUS [Concomitant]
  31. VANCOMYCIN [Concomitant]

REACTIONS (1)
  - INTERNATIONAL NORMALISED RATIO INCREASED [None]
